FAERS Safety Report 13446034 (Version 2)
Quarter: 2017Q2

REPORT INFORMATION
  Report Type: Spontaneous
  Country: US (occurrence: US)
  Receive Date: 20170417
  Receipt Date: 20170428
  Transmission Date: 20170830
  Serious: Yes (Other)
  Sender: FDA-Public Use
  Company Number: US-ROCHE-1919602

PATIENT
  Age: 69 Year
  Sex: Female
  Weight: 59.02 kg

DRUGS (2)
  1. LUCENTIS [Suspect]
     Active Substance: RANIBIZUMAB
     Indication: RETINAL VEIN OCCLUSION
     Dosage: 0.5 (UNIT NOT REPORTED)
     Route: 050
     Dates: start: 20170316
  2. LUCENTIS [Suspect]
     Active Substance: RANIBIZUMAB
     Dosage: FIRST DOSE  UNKNOWN IF CONTINUING
     Route: 050
     Dates: start: 20170323

REACTIONS (4)
  - Dizziness [Not Recovered/Not Resolved]
  - Ill-defined disorder [Recovered/Resolved]
  - Blood pressure increased [Not Recovered/Not Resolved]
  - Headache [Recovering/Resolving]

NARRATIVE: CASE EVENT DATE: 20170324
